FAERS Safety Report 6980592-9 (Version None)
Quarter: 2010Q3

REPORT INFORMATION
  Report Type: 
  Country: None (occurrence: None)
  Receive Date: 20100914
  Receipt Date: 20100902
  Transmission Date: 20110219
  Serious: No
  Sender: FDA-Public Use
  Company Number: US-B.I. PHARMACEUTICALS,INC./RIDGEFIELD-2010-BP-10171BP

PATIENT
  Sex: Male

DRUGS (26)
  1. ATROVENT HFA [Suspect]
     Indication: CHRONIC OBSTRUCTIVE PULMONARY DISEASE
     Route: 055
     Dates: start: 20100316, end: 20100823
  2. ATROVENT HFA [Suspect]
     Indication: BRONCHITIS CHRONIC
     Dosage: 4 PUF
     Route: 055
     Dates: start: 20100823
  3. PRILOSEC [Concomitant]
     Indication: GASTROOESOPHAGEAL REFLUX DISEASE
     Dosage: 40 MG
     Route: 048
     Dates: start: 19900101
  4. PHENERGAN [Concomitant]
     Indication: ABDOMINAL DISCOMFORT
     Dosage: 100 MG
     Route: 048
     Dates: start: 20030101
  5. PHENERGAN [Concomitant]
     Dates: start: 20050101
  6. ALBUTEROL [Concomitant]
     Indication: CHRONIC OBSTRUCTIVE PULMONARY DISEASE
     Route: 055
     Dates: start: 20050101
  7. KLONOPIN [Concomitant]
     Indication: ANXIETY
     Dosage: 4 MG
     Route: 048
     Dates: start: 20030101
  8. KLONOPIN [Concomitant]
     Indication: PANIC ATTACK
  9. VISTARIL [Concomitant]
     Indication: ANXIETY
     Dosage: 100 MG
     Route: 048
     Dates: start: 20050101
  10. VISTARIL [Concomitant]
     Indication: PANIC ATTACK
  11. DURAGESIC-100 [Concomitant]
     Indication: PAIN
     Route: 062
     Dates: start: 20050101
  12. DURAGESIC-100 [Concomitant]
     Indication: HEADACHE
  13. DURAGESIC-100 [Concomitant]
     Indication: ARNOLD-CHIARI MALFORMATION
  14. DURAGESIC-100 [Concomitant]
     Indication: HYDROCEPHALUS
  15. ZYPREXA [Concomitant]
     Indication: SCHIZOPHRENIA
     Dosage: 15 MG
     Route: 048
  16. PLAVIX [Concomitant]
     Indication: PULMONARY EMBOLISM
     Dosage: 25 MG
     Route: 048
     Dates: start: 20060101
  17. FLEXERIL [Concomitant]
     Indication: NECK PAIN
     Dosage: 30 MG
     Route: 048
     Dates: start: 20060101
  18. FLEXERIL [Concomitant]
     Indication: MUSCLE TIGHTNESS
  19. FIORICET [Concomitant]
     Indication: PAIN
     Route: 048
  20. REMERON [Concomitant]
     Indication: BIPOLAR DISORDER
     Dosage: 15 MG
  21. TRAZODONE HCL [Concomitant]
     Indication: SLEEP DISORDER
     Dosage: 200 MG
     Dates: start: 20080101
  22. SIMETHICONE [Concomitant]
     Indication: GASTROOESOPHAGEAL REFLUX DISEASE
     Route: 048
  23. CELEXA [Concomitant]
     Indication: DECREASED APPETITE
     Dosage: 40 MG
     Route: 048
     Dates: start: 20100101
  24. BENTYL [Concomitant]
     Indication: GASTROOESOPHAGEAL REFLUX DISEASE
     Dosage: 60 MG
     Route: 048
     Dates: end: 20100902
  25. BENTYL [Concomitant]
     Indication: ABDOMINAL DISCOMFORT
  26. TRAMADOL HCL [Concomitant]
     Indication: BREAKTHROUGH PAIN
     Route: 048

REACTIONS (5)
  - ASTHENIA [None]
  - DIZZINESS [None]
  - OROPHARYNGEAL BLISTERING [None]
  - PHARYNGEAL OEDEMA [None]
  - THROAT IRRITATION [None]
